FAERS Safety Report 14889752 (Version 2)
Quarter: 2018Q3

REPORT INFORMATION
  Report Type: Spontaneous
  Country: US (occurrence: US)
  Receive Date: 20180514
  Receipt Date: 20180713
  Transmission Date: 20181010
  Serious: Yes (Hospitalization, Other)
  Sender: FDA-Public Use
  Company Number: US-ASTRAZENECA-2018SE61405

PATIENT
  Age: 21761 Day
  Sex: Male
  Weight: 74.8 kg

DRUGS (33)
  1. LEVAQUIN [Concomitant]
     Active Substance: LEVOFLOXACIN
     Dosage: 500.0MG UNKNOWN
     Dates: start: 20090410
  2. CRESTOR [Concomitant]
     Active Substance: ROSUVASTATIN CALCIUM
     Dosage: 10.0MG UNKNOWN
     Dates: start: 20080124
  3. SULFAMETHOXAZOLE [Concomitant]
     Active Substance: SULFAMETHOXAZOLE
     Dates: start: 20060712
  4. TEMAZEPAM. [Concomitant]
     Active Substance: TEMAZEPAM
     Dosage: 15.0MG UNKNOWN
     Dates: start: 20050616
  5. ZETIA [Concomitant]
     Active Substance: EZETIMIBE
     Dosage: 10.0MG UNKNOWN
     Dates: start: 20050606
  6. ZANTAC [Concomitant]
     Active Substance: RANITIDINE HYDROCHLORIDE
  7. NITROSTAT [Concomitant]
     Active Substance: NITROGLYCERIN
     Dosage: 0.4MG UNKNOWN
     Dates: start: 20110913
  8. LOVENOX [Concomitant]
     Active Substance: ENOXAPARIN SODIUM
     Dosage: 40.0MG UNKNOWN
     Dates: start: 20090330
  9. MIRTAZAPINE. [Concomitant]
     Active Substance: MIRTAZAPINE
     Dosage: 15.0MG UNKNOWN
     Dates: start: 20090211
  10. NEXIUM [Suspect]
     Active Substance: ESOMEPRAZOLE MAGNESIUM
     Indication: GASTROOESOPHAGEAL REFLUX DISEASE
     Route: 048
     Dates: start: 2001, end: 2004
  11. PRILOSEC [Suspect]
     Active Substance: OMEPRAZOLE MAGNESIUM
     Indication: GASTROOESOPHAGEAL REFLUX DISEASE
     Dosage: 40.0MG UNKNOWN
     Route: 048
     Dates: start: 20090212
  12. FLUCONAZOLE. [Concomitant]
     Active Substance: FLUCONAZOLE
     Dosage: 100.0MG UNKNOWN
     Dates: start: 20090513
  13. FAMOTIDINE. [Concomitant]
     Active Substance: FAMOTIDINE
     Dosage: 20.0MG UNKNOWN
     Dates: start: 20040329
  14. ALLOPURINOL. [Concomitant]
     Active Substance: ALLOPURINOL
     Dosage: 300.0MG UNKNOWN
     Dates: start: 20120517
  15. NEXIUM [Suspect]
     Active Substance: ESOMEPRAZOLE MAGNESIUM
     Indication: GASTROOESOPHAGEAL REFLUX DISEASE
     Route: 048
     Dates: start: 2003, end: 2005
  16. PRILOSEC [Suspect]
     Active Substance: OMEPRAZOLE MAGNESIUM
     Indication: GASTROOESOPHAGEAL REFLUX DISEASE
     Dosage: 20.0MG UNKNOWN
     Route: 048
     Dates: start: 20090802
  17. PREVACID [Suspect]
     Active Substance: LANSOPRAZOLE
     Route: 065
  18. PROTONIX [Suspect]
     Active Substance: PANTOPRAZOLE SODIUM
     Indication: GASTROOESOPHAGEAL REFLUX DISEASE
     Route: 065
     Dates: start: 2014, end: 2018
  19. CIALIS [Concomitant]
     Active Substance: TADALAFIL
     Dosage: 20.0MG UNKNOWN
     Dates: start: 20090818
  20. CEFUROXIME AXETIL. [Concomitant]
     Active Substance: CEFUROXIME AXETIL
     Dosage: 500.0MG UNKNOWN
     Dates: start: 20080707
  21. NAPROXEN. [Concomitant]
     Active Substance: NAPROXEN
     Dosage: 500.0MG UNKNOWN
     Dates: start: 20061116
  22. METOPROLOL. [Concomitant]
     Active Substance: METOPROLOL
     Dosage: 25.0MG UNKNOWN
     Dates: start: 20060726
  23. PRILOSEC [Suspect]
     Active Substance: OMEPRAZOLE MAGNESIUM
     Indication: GASTROOESOPHAGEAL REFLUX DISEASE
     Route: 048
     Dates: start: 2004, end: 2005
  24. PLAVIX [Concomitant]
     Active Substance: CLOPIDOGREL BISULFATE
     Dosage: 75.0MG UNKNOWN
     Dates: start: 20090805
  25. OXYBUTYNIN. [Concomitant]
     Active Substance: OXYBUTYNIN CHLORIDE
     Dosage: 5.0MG UNKNOWN
     Dates: start: 20090514
  26. HYDROCHLOROTHIAZIDE. [Concomitant]
     Active Substance: HYDROCHLOROTHIAZIDE
     Dates: start: 20080121
  27. CAPTOPRIL. [Concomitant]
     Active Substance: CAPTOPRIL
     Dosage: 50.0MG UNKNOWN
     Dates: start: 20050811
  28. PROTONIX [Suspect]
     Active Substance: PANTOPRAZOLE SODIUM
     Indication: GASTROOESOPHAGEAL REFLUX DISEASE
     Dosage: 40.0MG UNKNOWN
     Route: 048
     Dates: start: 20160307
  29. PEPCID [Concomitant]
     Active Substance: FAMOTIDINE
  30. ENALAPRIL MALEATE. [Concomitant]
     Active Substance: ENALAPRIL MALEATE
     Dosage: 20.0MG UNKNOWN
     Dates: start: 20100506
  31. AZITHROMYCIN ANHYDROUS. [Concomitant]
     Active Substance: AZITHROMYCIN ANHYDROUS
     Dosage: 250.0MG UNKNOWN
     Dates: start: 20070725
  32. PRILOSEC [Suspect]
     Active Substance: OMEPRAZOLE MAGNESIUM
     Indication: GASTROOESOPHAGEAL REFLUX DISEASE
     Dosage: 20.0MG UNKNOWN
     Route: 048
     Dates: start: 20041025
  33. CIPROFLOXACIN. [Concomitant]
     Active Substance: CIPROFLOXACIN
     Dosage: 500.0MG UNKNOWN
     Dates: start: 20090126

REACTIONS (3)
  - Chronic kidney disease [Unknown]
  - Renal disorder [Not Recovered/Not Resolved]
  - Renal failure [Unknown]

NARRATIVE: CASE EVENT DATE: 20090326
